FAERS Safety Report 8333377-5 (Version None)
Quarter: 2012Q1

REPORT INFORMATION
  Report Type: 
  Country: None (occurrence: None)
  Receive Date: 20120327
  Receipt Date: 20110401
  Transmission Date: 20120608
  Serious: Yes (Hospitalization)
  Sender: FDA-Public Use
  Company Number: PHHY2011US27523

PATIENT
  Age: 81 Year
  Sex: Male
  Weight: 116.1 kg

DRUGS (7)
  1. PROCRIT [Concomitant]
  2. ACTOS [Concomitant]
  3. GLEEVEC [Suspect]
     Indication: GASTROINTESTINAL NEOPLASM
     Dosage: 400 MG, DAILY, ORAL; 400 MG DAILY
     Route: 048
     Dates: start: 20100416, end: 20100914
  4. GLEEVEC [Suspect]
     Indication: GASTROINTESTINAL NEOPLASM
     Dosage: 400 MG, DAILY, ORAL; 400 MG DAILY
     Route: 048
     Dates: start: 20100922
  5. LOPRESSOR [Concomitant]
  6. LANTUS [Concomitant]
  7. ASPIRIN [Concomitant]

REACTIONS (4)
  - LOSS OF CONSCIOUSNESS [None]
  - MALAISE [None]
  - MUSCULAR WEAKNESS [None]
  - HYPOAESTHESIA [None]
